FAERS Safety Report 25522542 (Version 2)
Quarter: 2025Q3

REPORT INFORMATION
  Report Type: Spontaneous
  Country: US (occurrence: US)
  Receive Date: 20250707
  Receipt Date: 20250818
  Transmission Date: 20251021
  Serious: Yes (Hospitalization)
  Sender: CATALYST PHARMA
  Company Number: US-CATALYST PHARMACEUTICALS-US-CATA-25-00952

PATIENT
  Age: 9 Year
  Sex: Male
  Weight: 21.6 kg

DRUGS (6)
  1. AGAMREE [Suspect]
     Active Substance: VAMOROLONE
     Indication: Duchenne muscular dystrophy
     Dosage: 2.9 ML (120 MG) DAILY
     Route: 048
     Dates: start: 20250624
  2. VITAMIN D [Concomitant]
     Active Substance: VITAMIN D NOS
     Indication: Hypovitaminosis
     Dosage: DAILY
     Route: 065
  3. URSODIOL [Concomitant]
     Active Substance: URSODIOL
     Indication: Bladder disorder
     Dosage: THREE TIMES DAILY
     Route: 048
  4. URSODIOL [Concomitant]
     Active Substance: URSODIOL
     Indication: Prophylaxis
  5. NEUPOGEN [Concomitant]
     Active Substance: FILGRASTIM
     Indication: Immune system disorder
     Dosage: DAILY
     Route: 065
  6. SULFAMETHOXAZOLE\TRIMETHOPRIM [Concomitant]
     Active Substance: SULFAMETHOXAZOLE\TRIMETHOPRIM
     Indication: Infection prophylaxis
     Dosage: TWICE DAILY
     Route: 065

REACTIONS (2)
  - Constipation [Recovered/Resolved]
  - Hepatic enzyme increased [Recovered/Resolved]

NARRATIVE: CASE EVENT DATE: 20250626
